FAERS Safety Report 18806929 (Version 2)
Quarter: 2021Q2

REPORT INFORMATION
  Report Type: Spontaneous
  Country: US (occurrence: US)
  Receive Date: 20210128
  Receipt Date: 20210519
  Transmission Date: 20210717
  Serious: Yes (Other)
  Sender: FDA-Public Use
  Company Number: US-GILEAD-2021-0513433

PATIENT
  Sex: Male

DRUGS (9)
  1. ALBUTEROL [SALBUTAMOL] [Concomitant]
     Active Substance: ALBUTEROL
  2. PREZCOBIX [Concomitant]
     Active Substance: COBICISTAT\DARUNAVIR ETHANOLATE
  3. TRUVADA [Suspect]
     Active Substance: EMTRICITABINE\TENOFOVIR DISOPROXIL FUMARATE
     Indication: HIV INFECTION
     Dosage: UNK
     Route: 048
     Dates: start: 2004
  4. LORATADINE. [Concomitant]
     Active Substance: LORATADINE
  5. TRAZODONE [Concomitant]
     Active Substance: TRAZODONE HYDROCHLORIDE
  6. DESCOVY [Concomitant]
     Active Substance: EMTRICITABINE\TENOFOVIR ALAFENAMIDE FUMARATE
  7. FLONASE [Concomitant]
     Active Substance: FLUTICASONE PROPIONATE
  8. TAMSULOSIN [Concomitant]
     Active Substance: TAMSULOSIN
  9. IBUPROFEN. [Concomitant]
     Active Substance: IBUPROFEN

REACTIONS (13)
  - Lower limb fracture [Recovered/Resolved]
  - Bone density decreased [Unknown]
  - Bone disorder [Unknown]
  - Pain [Not Recovered/Not Resolved]
  - Hip fracture [Unknown]
  - Anhedonia [Not Recovered/Not Resolved]
  - Femur fracture [Unknown]
  - Patella fracture [Recovered/Resolved]
  - Emotional distress [Not Recovered/Not Resolved]
  - Anxiety [Not Recovered/Not Resolved]
  - Osteoporosis [Not Recovered/Not Resolved]
  - Multiple fractures [Unknown]
  - Skeletal injury [Unknown]
